FAERS Safety Report 5595893-9 (Version None)
Quarter: 2008Q1

REPORT INFORMATION
  Report Type: 
  Country: None (occurrence: None)
  Receive Date: 20080118
  Receipt Date: 20070823
  Transmission Date: 20080703
  Serious: Yes (Life-Threatening)
  Sender: FDA-Public Use
  Company Number: US-BRISTOL-MYERS SQUIBB COMPANY-13843495

PATIENT
  Age: 54 Year
  Sex: Male

DRUGS (7)
  1. IFEX [Suspect]
     Indication: SARCOMA
     Dosage: CYCLE DATES 29/05/07 - 04/06/07, 18/06/07 - 22/06/07, 09/07/07 - 07/11/07. 21/2 CYCLE WAS COMPLETED.
     Route: 042
     Dates: start: 20070709, end: 20070711
  2. MESNA [Concomitant]
     Dates: start: 20070529, end: 20070605
  3. KYTRIL [Concomitant]
     Dates: start: 20070618, end: 20070623
  4. DECADRON [Concomitant]
     Dates: start: 20070618, end: 20070623
  5. INDOCIN [Concomitant]
     Dates: start: 20070709, end: 20070711
  6. ARANESP [Concomitant]
     Dosage: THERAPY DATES WERE 05/06/07, 18/06/07.
     Dates: start: 20070702, end: 20070702
  7. INFED [Concomitant]
     Dosage: THERAPY DATES WERE 05/06/07, 11/06/07, 18/06/07, 25/06/07, 02/07/07.
     Dates: start: 20070709, end: 20070709

REACTIONS (2)
  - COMA [None]
  - NEUROTOXICITY [None]
